FAERS Safety Report 13222367 (Version 1)
Quarter: 2017Q1

REPORT INFORMATION
  Report Type: Spontaneous
  Country: CO (occurrence: CO)
  Receive Date: 20170211
  Receipt Date: 20170211
  Transmission Date: 20170428
  Serious: Yes (Other)
  Sender: FDA-Public Use
  Company Number: CO-JNJFOC-20170202285

PATIENT
  Age: 2 Month
  Sex: Female
  Weight: 5 kg

DRUGS (1)
  1. DESITIN [Suspect]
     Active Substance: ZINC OXIDE
     Indication: DERMATITIS DIAPER
     Dosage: A MONTH AGO
     Route: 061

REACTIONS (2)
  - Haemorrhage [Recovered/Resolved]
  - Hypersensitivity [Recovered/Resolved]

NARRATIVE: CASE EVENT DATE: 201701
